FAERS Safety Report 4422364-5 (Version None)
Quarter: 2004Q3

REPORT INFORMATION
  Report Type: 
  Country: None (occurrence: None)
  Receive Date: 20040804
  Receipt Date: 20040713
  Transmission Date: 20050211
  Serious: Yes (Other)
  Sender: FDA-Public Use
  Company Number: USA040772476

PATIENT
  Age: 57 Year
  Sex: Female

DRUGS (1)
  1. HUMULIN 70/30 [Suspect]
     Indication: DIABETES MELLITUS
     Dosage: 50 U/2 OTHER
     Route: 050
     Dates: start: 19890101

REACTIONS (13)
  - ARTHRALGIA [None]
  - BEDRIDDEN [None]
  - BLOOD GLUCOSE INCREASED [None]
  - BURNING SENSATION [None]
  - EYE SWELLING [None]
  - FACIAL BONES FRACTURE [None]
  - FALL [None]
  - HYPERSENSITIVITY [None]
  - JOINT SWELLING [None]
  - LOSS OF CONSCIOUSNESS [None]
  - PERIORBITAL HAEMATOMA [None]
  - PROTEIN URINE PRESENT [None]
  - SYSTEMIC LUPUS ERYTHEMATOSUS [None]
